FAERS Safety Report 18991544 (Version 2)
Quarter: 2022Q4

REPORT INFORMATION
  Report Type: Spontaneous
  Country: FR (occurrence: FR)
  Receive Date: 20210310
  Receipt Date: 20221009
  Transmission Date: 20230113
  Serious: Yes (Other)
  Sender: FDA-Public Use
  Company Number: FR-TEVA-2021-FR-1871739

PATIENT
  Age: 40 Year
  Sex: Male
  Weight: 86 kg

DRUGS (2)
  1. COPAXONE [Suspect]
     Active Substance: GLATIRAMER ACETATE
     Indication: Multiple sclerosis
     Dosage: 40 MG/ML
     Route: 058
     Dates: start: 201503, end: 2021
  2. COPAXONE [Suspect]
     Active Substance: GLATIRAMER ACETATE
     Dosage: 40 MG/ML
     Route: 058
     Dates: start: 2021

REACTIONS (10)
  - Injection site necrosis [Recovering/Resolving]
  - Wound [Recovered/Resolved]
  - Injection site erythema [Unknown]
  - Injection site swelling [Unknown]
  - Pyrexia [Unknown]
  - Injection site pain [Not Recovered/Not Resolved]
  - Sitting disability [Not Recovered/Not Resolved]
  - Injection site urticaria [Recovered/Resolved]
  - Injection site haematoma [Recovered/Resolved]
  - Scar [Recovered/Resolved with Sequelae]

NARRATIVE: CASE EVENT DATE: 20210101
